FAERS Safety Report 12507804 (Version 1)
Quarter: 2016Q2

REPORT INFORMATION
  Report Type: Spontaneous
  Country: US (occurrence: None)
  Receive Date: 20160628
  Receipt Date: 20160628
  Transmission Date: 20160815
  Serious: No
  Sender: FDA-Public Use
  Company Number: None

PATIENT
  Age: 58 Year
  Sex: Male
  Weight: 86.18 kg

DRUGS (2)
  1. ROHTO ARCTIC [Suspect]
     Active Substance: HYPROMELLOSE 2208 (100 MPA.S)\TETRAHYDROZOLINE HYDROCHLORIDE
     Indication: DRY EYE
     Route: 031
  2. ROHTO ARCTIC [Suspect]
     Active Substance: HYPROMELLOSE 2208 (100 MPA.S)\TETRAHYDROZOLINE HYDROCHLORIDE
     Indication: EYE IRRITATION
     Route: 031

REACTIONS (2)
  - Instillation site reaction [None]
  - Corneal oedema [None]

NARRATIVE: CASE EVENT DATE: 20160518
